FAERS Safety Report 17028584 (Version 2)
Quarter: 2022Q1

REPORT INFORMATION
  Report Type: Spontaneous
  Country: OM (occurrence: OM)
  Receive Date: 20191113
  Receipt Date: 20220113
  Transmission Date: 20220423
  Serious: Yes (Other)
  Sender: FDA-Public Use
  Company Number: OM-SUN PHARMACEUTICAL INDUSTRIES LTD-2019R1-227168

PATIENT
  Age: 35 Year
  Sex: Female

DRUGS (2)
  1. TRANEXAMIC ACID [Suspect]
     Active Substance: TRANEXAMIC ACID
     Indication: Haemorrhage
     Dosage: 1 GRAM, UNK
     Route: 042
  2. DDAVP [Suspect]
     Active Substance: DESMOPRESSIN ACETATE
     Indication: Haemorrhage
     Dosage: UNK
     Route: 045

REACTIONS (3)
  - Exposure during pregnancy [Unknown]
  - Foetal growth restriction [Unknown]
  - Live birth [Unknown]
